FAERS Safety Report 11319887 (Version 1)
Quarter: 2015Q3

REPORT INFORMATION
  Report Type: Spontaneous
  Country: US (occurrence: None)
  Receive Date: 20150728
  Receipt Date: 20150728
  Transmission Date: 20151125
  Serious: No
  Sender: FDA-Public Use
  Company Number: None

PATIENT
  Age: 70 Year
  Sex: Male

DRUGS (16)
  1. ACETAMINOPHEN. [Concomitant]
     Active Substance: ACETAMINOPHEN
  2. CLOPIDOGREL [Concomitant]
     Active Substance: CLOPIDOGREL BISULFATE
  3. DOCUSATE [Concomitant]
     Active Substance: DOCUSATE
  4. LANSOPRAZOLE. [Concomitant]
     Active Substance: LANSOPRAZOLE
  5. MYCOPHENOLATE [Concomitant]
     Active Substance: MYCOPHENOLIC ACID
  6. INSULIN GLARGINE [Suspect]
     Active Substance: INSULIN GLARGINE
     Indication: HYPERGLYCAEMIA
     Route: 058
     Dates: start: 20150429
  7. ASPIRIN. [Concomitant]
     Active Substance: ASPIRIN
  8. HEPARIN [Concomitant]
     Active Substance: HEPARIN SODIUM
  9. OLANZAPINE. [Concomitant]
     Active Substance: OLANZAPINE
  10. PREDNISONE. [Concomitant]
     Active Substance: PREDNISONE
  11. PEG [Concomitant]
     Active Substance: POLYETHYLENE GLYCOLS
  12. CHOLECALCIFEROL [Concomitant]
     Active Substance: CHOLECALCIFEROL
  13. TACROLIMUS. [Concomitant]
     Active Substance: TACROLIMUS
  14. ASCORBIC ACID. [Concomitant]
     Active Substance: ASCORBIC ACID
  15. ATORVASTATIN [Concomitant]
     Active Substance: ATORVASTATIN
  16. MULTIVITAMIN [Concomitant]
     Active Substance: VITAMINS

REACTIONS (1)
  - Blood glucose decreased [None]

NARRATIVE: CASE EVENT DATE: 20150502
